FAERS Safety Report 8576136-0 (Version None)
Quarter: 2012Q3

REPORT INFORMATION
  Report Type: 
  Country: None (occurrence: None)
  Receive Date: 20120807
  Receipt Date: 20120730
  Transmission Date: 20120928
  Serious: Yes (Hospitalization)
  Sender: FDA-Public Use
  Company Number: CA-JNJFOC-20120800522

PATIENT
  Sex: Male
  Weight: 106 kg

DRUGS (4)
  1. REMICADE [Suspect]
     Route: 042
     Dates: start: 20110927
  2. COUMADIN [Concomitant]
     Route: 065
  3. REMICADE [Suspect]
     Indication: CROHN'S DISEASE
     Dosage: 7TH DOSE
     Route: 042
  4. UNKNOWN MEDICATION [Concomitant]
     Route: 065

REACTIONS (1)
  - PERIPHERAL PARALYSIS [None]
